FAERS Safety Report 5266806-4 (Version None)
Quarter: 2007Q1

REPORT INFORMATION
  Report Type: 
  Country: None (occurrence: None)
  Receive Date: 20061213
  Receipt Date: 20021111
  Transmission Date: 20070707
  Serious: No
  Sender: FDA-Public Use
  Company Number: 2002UW15671

PATIENT
  Age: 83 Year
  Sex: Female
  Weight: 81.9196 kg

DRUGS (8)
  1. NOLVADEX [Suspect]
     Indication: BREAST CANCER
     Dosage: 20 MG QD PO
     Route: 048
     Dates: start: 19970830
  2. ASPIRIN [Concomitant]
  3. GLYBURIDE [Concomitant]
  4. ALTACE [Concomitant]
  5. VERAPAMIL [Concomitant]
  6. DIGOXIN [Concomitant]
  7. PRILOSEC [Concomitant]
  8. DISOPYRAMIDE [Concomitant]

REACTIONS (1)
  - CATARACT [None]
